FAERS Safety Report 9199221 (Version 2)
Quarter: 2013Q2

REPORT INFORMATION
  Report Type: Spontaneous
  Country: US (occurrence: None)
  Receive Date: 20130325
  Receipt Date: 20130415
  Transmission Date: 20140414
  Serious: No
  Sender: FDA-Public Use
  Company Number: 2013US-004595

PATIENT
  Age: 44 Year
  Sex: Male
  Weight: 78.5 kg

DRUGS (10)
  1. OMONTYS [Suspect]
     Indication: NEPHROGENIC ANAEMIA
     Route: 042
     Dates: start: 20130212, end: 20130212
  2. EPOGEN (EPOETIN ALFA) [Concomitant]
  3. AMBIEN (ZOLPIDEM TARTRATE) [Concomitant]
  4. COUMADIN (WARFARIN SODIUM) [Concomitant]
  5. LABETALOL (LABETALOL) [Concomitant]
  6. LASIX (FUROSEMIDE) [Concomitant]
  7. AMLODIPINE (AMLODIPINE) [Concomitant]
  8. HEPARIN (HEPARIN) [Concomitant]
  9. ZEMPLAR (PARICALCITOL) [Concomitant]
  10. TYLENOL (PARACETAMOL) [Concomitant]

REACTIONS (5)
  - Hyperhidrosis [None]
  - Dyspnoea [None]
  - Abdominal discomfort [None]
  - Chest pain [None]
  - Anaphylactic reaction [None]
